FAERS Safety Report 6121889-4 (Version None)
Quarter: 2009Q1

REPORT INFORMATION
  Report Type: 
  Country: None (occurrence: None)
  Receive Date: 20090313
  Receipt Date: 20090304
  Transmission Date: 20090719
  Serious: Yes (Hospitalization)
  Sender: FDA-Public Use
  Company Number: 2009-192557-NL

PATIENT
  Age: 56 Year
  Sex: Female

DRUGS (7)
  1. MIRTAZAPINE [Suspect]
     Dosage: 45 MG ORAL
     Route: 048
     Dates: start: 20081101, end: 20090103
  2. SOLVEX [Concomitant]
  3. PERAZINE [Concomitant]
  4. METFORMIN [Concomitant]
  5. METOPROLOL SUCCINATE [Concomitant]
  6. ENALAPRIL MALEATE [Concomitant]
  7. MOLSIDOMINE [Concomitant]

REACTIONS (2)
  - RESTLESS LEGS SYNDROME [None]
  - SLEEP DISORDER [None]
